FAERS Safety Report 11636662 (Version 1)
Quarter: 2015Q4

REPORT INFORMATION
  Report Type: Spontaneous
  Country: PT (occurrence: PT)
  Receive Date: 20151016
  Receipt Date: 20151016
  Transmission Date: 20160304
  Serious: Yes (Other)
  Sender: FDA-Public Use
  Company Number: PT-VIFOR (INTERNATIONAL) INC.-VIT-2015-02335

PATIENT
  Age: 59 Year
  Sex: Male
  Weight: 64 kg

DRUGS (9)
  1. DAGRAVIT 8 [Concomitant]
     Indication: ANAEMIA
     Route: 048
     Dates: start: 20140821
  2. FOLICIL [Concomitant]
     Active Substance: FOLIC ACID
     Indication: ANAEMIA
     Route: 048
     Dates: start: 20140821
  3. ALFACALCIDOL [Concomitant]
     Active Substance: ALFACALCIDOL
     Indication: VITAMIN D DEFICIENCY
     Dosage: THREE CAPSULES, THREE TIMES A WEEK
     Route: 048
  4. VELPHORO [Suspect]
     Active Substance: FERRIC OXYHYDROXIDE
     Indication: HYPERPHOSPHATAEMIA
     Route: 048
     Dates: start: 20150806, end: 20150817
  5. MIMPARA [Concomitant]
     Active Substance: CINACALCET HYDROCHLORIDE
     Indication: HYPERPARATHYROIDISM
     Route: 048
     Dates: start: 20150422
  6. ENALAPRIL [Concomitant]
     Active Substance: ENALAPRIL
     Indication: HYPERTENSION
     Route: 048
     Dates: start: 20150625
  7. HEPARIN [Concomitant]
     Active Substance: HEPARIN SODIUM
     Dosage: 2500UI/5 ML
  8. OMEPRAZOLE. [Concomitant]
     Active Substance: OMEPRAZOLE
     Indication: PROPHYLAXIS AGAINST GASTROINTESTINAL ULCER
     Route: 048
     Dates: start: 20150625
  9. SACCHARATED IRON OXIDE [Concomitant]
     Active Substance: IRON SUCROSE
     Indication: ANAEMIA

REACTIONS (2)
  - Faeces discoloured [Recovered/Resolved]
  - Pruritus [Recovered/Resolved]

NARRATIVE: CASE EVENT DATE: 20150808
